FAERS Safety Report 6585986-1 (Version None)
Quarter: 2010Q1

REPORT INFORMATION
  Report Type: 
  Country: None (occurrence: None)
  Receive Date: 20100216
  Receipt Date: 20100216
  Transmission Date: 20100710
  Serious: Yes (Other)
  Sender: FDA-Public Use
  Company Number: None

PATIENT
  Age: 52 Year
  Sex: Female
  Weight: 70.3075 kg

DRUGS (2)
  1. LEVAQUIN [Suspect]
     Indication: PYREXIA
     Dosage: 1 DAILY PO
     Route: 048
     Dates: start: 20100127, end: 20100201
  2. LEVAQUIN [Suspect]
     Indication: SINUSITIS
     Dosage: 1 DAILY PO
     Route: 048
     Dates: start: 20100127, end: 20100201

REACTIONS (3)
  - BURNING SENSATION [None]
  - SWELLING FACE [None]
  - URTICARIA [None]
